FAERS Safety Report 25983056 (Version 1)
Quarter: 2025Q4

REPORT INFORMATION
  Report Type: Spontaneous
  Country: JP (occurrence: JP)
  Receive Date: 20251031
  Receipt Date: 20251031
  Transmission Date: 20260117
  Serious: Yes (Other)
  Sender: HALEON
  Company Number: JP-HALEON-2270688

PATIENT
  Age: 6 Decade
  Sex: Female
  Weight: 47.8 kg

DRUGS (1)
  1. ALLI [Suspect]
     Active Substance: ORLISTAT
     Indication: Product used for unknown indication
     Dosage: TIME INTERVAL: AS NECESSARY: 90 CAPSULES, THE PERIOD OF USE IS 2 MONTHS, AND THE DAILY DOSE (SING...
     Route: 048

REACTIONS (5)
  - Aortic dissection [Unknown]
  - Constipation [Unknown]
  - Arthralgia [Unknown]
  - Oedema [Unknown]
  - Blood cholesterol increased [Unknown]

NARRATIVE: CASE EVENT DATE: 20251010
